FAERS Safety Report 7034415-2 (Version None)
Quarter: 2010Q4

REPORT INFORMATION
  Report Type: 
  Country: None (occurrence: None)
  Receive Date: 20101008
  Receipt Date: 20100927
  Transmission Date: 20110411
  Serious: Yes (Other)
  Sender: FDA-Public Use
  Company Number: PHHY2010GB26663

PATIENT
  Sex: Male

DRUGS (6)
  1. CLOZARIL [Suspect]
     Indication: SCHIZOPHRENIA, PARANOID TYPE
     Dosage: UNK
     Dates: start: 20060816
  2. CITALOPRAM HYDROBROMIDE [Concomitant]
     Indication: DEPRESSED MOOD
     Dosage: 20 MG, UNK
     Route: 048
     Dates: start: 20091015
  3. ESOMEPRAZOLE [Concomitant]
     Indication: PEPTIC ULCER
     Dosage: 80 MG, UNK
     Route: 048
     Dates: start: 20090608
  4. ORLISTAT [Concomitant]
     Indication: OBESITY
     Dosage: 240 MG, UNK
     Route: 048
     Dates: start: 20090608
  5. FERROUS SULFATE [Concomitant]
     Indication: HAEMOGLOBIN DECREASED
     Dosage: 400 MG, UNK
     Route: 048
     Dates: start: 20090608
  6. FOLIC ACID [Concomitant]
     Indication: HAEMOGLOBIN DECREASED
     Dosage: 5 MG, UNK
     Route: 048
     Dates: start: 20091015

REACTIONS (2)
  - ADENOIDECTOMY [None]
  - ADENOIDITIS [None]
